FAERS Safety Report 24065574 (Version 1)
Quarter: 2024Q3

REPORT INFORMATION
  Report Type: Spontaneous
  Country: CN (occurrence: CN)
  Receive Date: 20240709
  Receipt Date: 20240709
  Transmission Date: 20241017
  Serious: Yes (Other)
  Sender: BAXTER
  Company Number: None

PATIENT
  Age: 68 Year
  Sex: Female
  Weight: 52 kg

DRUGS (5)
  1. CYCLOPHOSPHAMIDE [Suspect]
     Active Substance: CYCLOPHOSPHAMIDE
     Indication: Plasma cell myeloma
     Dosage: 0.3 G, ONE TIME IN ONE DAY, AS A PART OF DARA + DECP CHEMOTHERAPY
     Route: 041
     Dates: start: 20240615, end: 20240618
  2. CISPLATIN [Suspect]
     Active Substance: CISPLATIN
     Indication: Plasma cell myeloma
     Dosage: UNK, AS A PART OF DARA + DECP CHEMOTHERAPY
     Route: 065
     Dates: start: 20240613
  3. ETOPOSIDE [Suspect]
     Active Substance: ETOPOSIDE
     Indication: Plasma cell myeloma
     Dosage: UNK, AS A PART OF DARA + DECP CHEMOTHERAPY
     Route: 065
     Dates: start: 20240613
  4. DEXAMETHASONE [Suspect]
     Active Substance: DEXAMETHASONE
     Indication: Plasma cell myeloma
     Dosage: UNK, AS A PART OF DARA + DECP CHEMOTHERAPY
     Route: 065
     Dates: start: 20240613
  5. DARATUMUMAB [Suspect]
     Active Substance: DARATUMUMAB
     Indication: Plasma cell myeloma
     Dosage: UNK, AS A PART OF DARA + DECP CHEMOTHERAPY
     Route: 065
     Dates: start: 20240613

REACTIONS (3)
  - Condition aggravated [Unknown]
  - Plasma cell myeloma [Unknown]
  - Myelosuppression [Recovering/Resolving]

NARRATIVE: CASE EVENT DATE: 20240618
